FAERS Safety Report 5707782-7 (Version None)
Quarter: 2008Q2

REPORT INFORMATION
  Report Type: 
  Country: None (occurrence: None)
  Receive Date: 20080417
  Receipt Date: 20080407
  Transmission Date: 20081010
  Serious: Yes (Other)
  Sender: FDA-Public Use
  Company Number: GR-BRISTOL-MYERS SQUIBB COMPANY-14151724

PATIENT
  Age: 40 Year
  Sex: Female

DRUGS (8)
  1. CYCLOPHOSPHAMIDE [Suspect]
     Indication: BREAST CANCER
     Dosage: 4 + 5 CYCLE: 1500 MG GIVEN ON 08MAY06 AND 22MAY06.
     Route: 042
     Dates: start: 20060605, end: 20060605
  2. METHOTREXATE [Suspect]
     Indication: BREAST CANCER
     Dosage: 4 + 5 CYCLE: 102 MG GIVEN ON 08MAY06 AND 22MAY06.
     Route: 042
     Dates: start: 20060605, end: 20060605
  3. FLUOROURACIL [Suspect]
     Indication: BREAST CANCER
     Dosage: 4 + 5 CYCLE: 1500MG GIVEN ON 08MAY06 AND 22MAY06.
     Route: 042
     Dates: start: 20060605, end: 20060605
  4. ZOFRAN [Concomitant]
  5. ZANTAC [Concomitant]
  6. FENISTIL [Concomitant]
  7. DEXAMETHASONE TAB [Concomitant]
  8. NEULASTA [Concomitant]

REACTIONS (1)
  - ALANINE AMINOTRANSFERASE ABNORMAL [None]
